FAERS Safety Report 23600635 (Version 3)
Quarter: 2024Q1

REPORT INFORMATION
  Report Type: Spontaneous
  Country: US (occurrence: US)
  Receive Date: 20240306
  Receipt Date: 20240328
  Transmission Date: 20240409
  Serious: No
  Sender: FDA-Public Use
  Company Number: US-PFIZER INC-202400040967

PATIENT
  Age: 3 Year
  Sex: Male
  Weight: 41.73 kg

DRUGS (1)
  1. GENOTROPIN [Suspect]
     Active Substance: SOMATROPIN
     Indication: Failure to thrive
     Dosage: 0.6 UNITS UNKNOWN, DAILY IN HIS THIGHS
     Dates: start: 2010

REACTIONS (6)
  - Drug dose omission by device [Unknown]
  - Wrong technique in device usage process [Unknown]
  - Off label use [Unknown]
  - Device mechanical issue [Unknown]
  - Device issue [Unknown]
  - Device leakage [Unknown]

NARRATIVE: CASE EVENT DATE: 20100101
